FAERS Safety Report 21327141 (Version 3)
Quarter: 2023Q1

REPORT INFORMATION
  Report Type: Spontaneous
  Country: US (occurrence: None)
  Receive Date: 20220913
  Receipt Date: 20230206
  Transmission Date: 20230417
  Serious: Yes (Other)
  Sender: FDA-Public Use
  Company Number: US-ROCHE-3176171

PATIENT
  Age: 40 Year
  Sex: Male

DRUGS (5)
  1. OCREVUS [Suspect]
     Active Substance: OCRELIZUMAB
     Indication: Primary progressive multiple sclerosis
     Dosage: .SECOND 1/2 DOSE OF OCREVUS WAS ON 01-APR-2022
     Route: 042
     Dates: start: 20220318, end: 20220401
  2. OCREVUS [Suspect]
     Active Substance: OCRELIZUMAB
     Route: 042
     Dates: start: 20220401
  3. GABAPENTIN [Concomitant]
     Active Substance: GABAPENTIN
  4. OXYBUTYNIN [Concomitant]
     Active Substance: OXYBUTYNIN
  5. BACLOFEN [Concomitant]
     Active Substance: BACLOFEN

REACTIONS (1)
  - Thyroid cancer [Not Recovered/Not Resolved]

NARRATIVE: CASE EVENT DATE: 20220822
